FAERS Safety Report 26066754 (Version 1)
Quarter: 2025Q4

REPORT INFORMATION
  Report Type: Spontaneous
  Country: US (occurrence: US)
  Receive Date: 20251119
  Receipt Date: 20251119
  Transmission Date: 20260117
  Serious: Yes (Other)
  Sender: NOVO NORDISK
  Company Number: US-NOVOPROD-1564059

PATIENT
  Age: 72 Year
  Sex: Female

DRUGS (2)
  1. NOVOLOG [Suspect]
     Active Substance: INSULIN ASPART
     Indication: Precancerous condition
  2. NOVOLOG [Suspect]
     Active Substance: INSULIN ASPART
     Indication: Type 1 diabetes mellitus
     Dosage: SLIDING SCALE
     Dates: start: 20070526

REACTIONS (3)
  - Intervertebral disc protrusion [Unknown]
  - Back injury [Not Recovered/Not Resolved]
  - Condition aggravated [Not Recovered/Not Resolved]
